FAERS Safety Report 9206180 (Version 2)
Quarter: 2013Q2

REPORT INFORMATION
  Report Type: Spontaneous
  Country: GB (occurrence: None)
  Receive Date: 20130401
  Receipt Date: 20130401
  Transmission Date: 20140414
  Serious: Yes (Other)
  Sender: FDA-Public Use
  Company Number: 2013P1003639

PATIENT
  Age: 39 Year
  Sex: Male
  Weight: 74 kg

DRUGS (2)
  1. CIPROFLOXACIN [Suspect]
     Dates: start: 20121217, end: 20121226
  2. AMOXICILLIN [Concomitant]

REACTIONS (5)
  - Tendon pain [None]
  - Gastrointestinal disorder [None]
  - Visual impairment [None]
  - Food allergy [None]
  - Tendon disorder [None]
